FAERS Safety Report 15580626 (Version 4)
Quarter: 2020Q1

REPORT INFORMATION
  Report Type: Report from Study
  Country: US (occurrence: US)
  Receive Date: 20181102
  Receipt Date: 20200117
  Transmission Date: 20200409
  Serious: Yes (Hospitalization, Other)
  Sender: FDA-Public Use
  Company Number: PHEH2018US045846

PATIENT
  Sex: Female

DRUGS (3)
  1. TEGRETOL [Suspect]
     Active Substance: CARBAMAZEPINE
     Indication: SEIZURE
     Dosage: UNK
     Route: 065
  2. PERCOCET [Concomitant]
     Active Substance: ACETAMINOPHEN\OXYCODONE HYDROCHLORIDE
     Indication: BACK DISORDER
     Dosage: UNK
     Route: 065
  3. AFINITOR [Suspect]
     Active Substance: EVEROLIMUS
     Indication: ASTROCYTOMA, LOW GRADE
     Dosage: 7.5 MG, QD
     Route: 048

REACTIONS (17)
  - Chest injury [Unknown]
  - Blood cholesterol increased [Unknown]
  - Femur fracture [Unknown]
  - Unresponsive to stimuli [Unknown]
  - Nephropathy [Unknown]
  - Intervertebral disc disorder [Unknown]
  - Ligament sprain [Unknown]
  - Blood glucose increased [Unknown]
  - Contusion [Unknown]
  - Oedema peripheral [Unknown]
  - Blood triglycerides increased [Unknown]
  - Musculoskeletal discomfort [Unknown]
  - Drug level increased [Unknown]
  - Stress [Unknown]
  - Weight increased [Unknown]
  - Dry mouth [Unknown]
  - Fall [Unknown]
